FAERS Safety Report 6125076-5 (Version None)
Quarter: 2009Q1

REPORT INFORMATION
  Report Type: 
  Country: None (occurrence: None)
  Receive Date: 20090318
  Receipt Date: 20090306
  Transmission Date: 20090719
  Serious: Yes (Death)
  Sender: FDA-Public Use
  Company Number: CLOF-1000472

PATIENT

DRUGS (4)
  1. CLOLAR [Suspect]
     Indication: LEUKAEMIA
     Dosage: QDX4, INTRAVENOUS
     Route: 042
  2. THYMOGLOBULIN [Suspect]
     Indication: GRAFT VERSUS HOST DISEASE
  3. FLUDARABINE PHOSPHATE [Suspect]
     Indication: LEUKAEMIA
     Dosage: QDX4, INTRAVENOUS
     Route: 042
  4. BUSULFAN (BUSULFAN) [Suspect]
     Indication: LEUKAEMIA
     Dosage: QDX4, INTRAVENOUS
     Route: 042

REACTIONS (1)
  - GRAFT VERSUS HOST DISEASE [None]
